FAERS Safety Report 6848721-5 (Version None)
Quarter: 2010Q3

REPORT INFORMATION
  Report Type: 
  Country: None (occurrence: None)
  Receive Date: 20100716
  Receipt Date: 20070905
  Transmission Date: 20110219
  Serious: No
  Sender: FDA-Public Use
  Company Number: US-PFIZER INC-2007074723

PATIENT
  Sex: Female
  Weight: 93.9 kg

DRUGS (7)
  1. CHANTIX [Suspect]
     Indication: SMOKING CESSATION THERAPY
     Dates: start: 20070905
  2. ALEVE (CAPLET) [Concomitant]
     Indication: ARTHRITIS
  3. PLAVIX [Concomitant]
  4. PRILOSEC [Concomitant]
  5. HYDROCHLOROTHIAZIDE [Concomitant]
  6. MONOPRIL [Concomitant]
  7. LANTUS [Concomitant]

REACTIONS (1)
  - NAUSEA [None]
